FAERS Safety Report 21844120 (Version 2)
Quarter: 2023Q1

REPORT INFORMATION
  Report Type: Report from Study
  Country: GR (occurrence: GR)
  Receive Date: 20230110
  Receipt Date: 20230127
  Transmission Date: 20230418
  Serious: No
  Sender: FDA-Public Use
  Company Number: GR-TAKEDA-2023TUS000210

PATIENT
  Age: 70 Year
  Sex: Female

DRUGS (6)
  1. PARATHYROID HORMONE [Suspect]
     Active Substance: PARATHYROID HORMONE
     Indication: Hypoparathyroidism
     Dosage: 25 MILLIGRAM, QD
     Route: 050
     Dates: start: 20221121
  2. PARATHYROID HORMONE [Suspect]
     Active Substance: PARATHYROID HORMONE
     Indication: Hypoparathyroidism
     Dosage: 25 MILLIGRAM, QD
     Route: 050
     Dates: start: 20221121
  3. PARATHYROID HORMONE [Suspect]
     Active Substance: PARATHYROID HORMONE
     Indication: Hypoparathyroidism
     Dosage: 25 MILLIGRAM, QD
     Route: 050
     Dates: start: 20221121
  4. PARATHYROID HORMONE [Suspect]
     Active Substance: PARATHYROID HORMONE
     Dosage: 50 MILLIGRAM, QD
     Route: 050
     Dates: start: 20221121
  5. PARATHYROID HORMONE [Suspect]
     Active Substance: PARATHYROID HORMONE
     Dosage: 50 MILLIGRAM, QD
     Route: 050
     Dates: start: 20221121
  6. PARATHYROID HORMONE [Suspect]
     Active Substance: PARATHYROID HORMONE
     Dosage: 50 MILLIGRAM, QD
     Route: 050
     Dates: start: 20221121

REACTIONS (4)
  - Tachycardia [Unknown]
  - Headache [Unknown]
  - Device defective [Unknown]
  - Incorrect dose administered [Unknown]
